FAERS Safety Report 20423428 (Version 2)
Quarter: 2022Q1

REPORT INFORMATION
  Report Type: Spontaneous
  Country: TH (occurrence: TH)
  Receive Date: 20220203
  Receipt Date: 20220210
  Transmission Date: 20220423
  Serious: Yes (Other)
  Sender: FDA-Public Use
  Company Number: TH-PFIZER INC-202200169601

PATIENT
  Age: 41 Year
  Sex: Male

DRUGS (3)
  1. PRISTIQ EXTENDED-RELEASE [Suspect]
     Active Substance: DESVENLAFAXINE SUCCINATE
     Indication: Anxiety
     Dosage: 100 MG
  2. PRISTIQ EXTENDED-RELEASE [Suspect]
     Active Substance: DESVENLAFAXINE SUCCINATE
     Indication: Depression
     Dosage: 50 MG
     Dates: start: 202201
  3. DIAZEPAM [Concomitant]
     Active Substance: DIAZEPAM
     Indication: Feeling of relaxation
     Dosage: NOT OFTEN WHEN NEEDED

REACTIONS (1)
  - Drug dependence [Not Recovered/Not Resolved]
